FAERS Safety Report 19179534 (Version 1)
Quarter: 2021Q2

REPORT INFORMATION
  Report Type: Spontaneous
  Country: JP (occurrence: JP)
  Receive Date: 20210426
  Receipt Date: 20210426
  Transmission Date: 20210717
  Serious: Yes (Other)
  Sender: FDA-Public Use
  Company Number: JP-GLAXOSMITHKLINE-JP2021087313

PATIENT
  Sex: Male

DRUGS (1)
  1. ALLERMIST [Suspect]
     Active Substance: FLUTICASONE FUROATE
     Indication: PRURITUS
     Dosage: UNK
     Route: 045

REACTIONS (7)
  - Eye haemorrhage [Unknown]
  - Pruritus [Unknown]
  - Therapy cessation [Unknown]
  - Nasal inflammation [Unknown]
  - Epistaxis [Unknown]
  - Foreign body in respiratory tract [Unknown]
  - Product use in unapproved indication [Unknown]

NARRATIVE: CASE EVENT DATE: 202103
